FAERS Safety Report 5591372-3 (Version None)
Quarter: 2008Q1

REPORT INFORMATION
  Report Type: 
  Country: None (occurrence: None)
  Receive Date: 20080111
  Receipt Date: 20080111
  Transmission Date: 20080703
  Serious: Yes (Other)
  Sender: FDA-Public Use
  Company Number: None

PATIENT
  Age: 43 Year
  Sex: Female

DRUGS (2)
  1. CHANTIX [Suspect]
     Indication: SMOKING CESSATION THERAPY
     Dosage: 1  BID  PO
     Route: 048
     Dates: start: 20071201, end: 20080101
  2. ADDERALL 10 [Suspect]
     Dosage: 60MG  DAILY  PO
     Route: 048

REACTIONS (1)
  - PSYCHOTIC DISORDER [None]
